FAERS Safety Report 4814817-2 (Version None)
Quarter: 2005Q4

REPORT INFORMATION
  Report Type: 
  Country: None (occurrence: None)
  Receive Date: 20051028
  Receipt Date: 20050106
  Transmission Date: 20060501
  Serious: No
  Sender: FDA-Public Use
  Company Number: US-GLAXOSMITHKLINE-A0539671A

PATIENT
  Age: 29 Year
  Sex: Female
  Weight: 58.2 kg

DRUGS (2)
  1. ADVAIR DISKUS 100/50 [Suspect]
     Indication: ASTHMA
     Dosage: 1PUFF SINGLE DOSE
     Route: 055
     Dates: start: 20050105
  2. HYDROCHLOROTHIAZIDE [Concomitant]

REACTIONS (1)
  - GLOSSODYNIA [None]
